FAERS Safety Report 12210539 (Version 1)
Quarter: 2016Q1

REPORT INFORMATION
  Report Type: Spontaneous
  Country: US (occurrence: US)
  Receive Date: 20160325
  Receipt Date: 20160325
  Transmission Date: 20160526
  Serious: Yes (Other)
  Sender: FDA-Public Use
  Company Number: US-JNJFOC-20160321038

PATIENT
  Age: 57 Year
  Sex: Female
  Weight: 55.34 kg

DRUGS (2)
  1. INVOKANA [Suspect]
     Active Substance: CANAGLIFLOZIN
     Indication: TYPE 2 DIABETES MELLITUS
     Route: 048
     Dates: start: 201502, end: 201602
  2. INSULIN [Concomitant]
     Active Substance: INSULIN NOS
     Indication: DIABETES MELLITUS
     Route: 065
     Dates: start: 201602

REACTIONS (3)
  - Vaginal haemorrhage [Recovered/Resolved]
  - Adverse event [Unknown]
  - Thyroid mass [Recovered/Resolved]

NARRATIVE: CASE EVENT DATE: 201502
